FAERS Safety Report 9869816 (Version 1)
Quarter: 2014Q1

REPORT INFORMATION
  Report Type: Spontaneous
  Country: US (occurrence: US)
  Receive Date: 20140205
  Receipt Date: 20140205
  Transmission Date: 20141002
  Serious: No
  Sender: FDA-Public Use
  Company Number: US-GLAXOSMITHKLINE-A1047905A

PATIENT
  Age: 77 Year
  Sex: Female

DRUGS (2)
  1. ARIXTRA [Suspect]
     Indication: HIP ARTHROPLASTY
     Dosage: 1.5MG UNKNOWN
     Route: 058
     Dates: start: 20131031
  2. UNKNOWN [Concomitant]

REACTIONS (1)
  - Off label use [Unknown]
